FAERS Safety Report 5986942-4 (Version None)
Quarter: 2008Q4

REPORT INFORMATION
  Report Type: 
  Country: None (occurrence: None)
  Receive Date: 20081209
  Receipt Date: 20081105
  Transmission Date: 20090506
  Serious: No
  Sender: FDA-Public Use
  Company Number: US-BAYER-200837903NA

PATIENT
  Age: 81 Year
  Sex: Male
  Weight: 77 kg

DRUGS (2)
  1. ULTRAVIST 370 [Suspect]
     Indication: ARTERIOGRAM
     Dosage: AS USED: VIA 140 ML  UNIT DOSE: 100 ML
     Route: 042
     Dates: start: 20051105, end: 20051105
  2. METFORMIN HCL [Concomitant]

REACTIONS (3)
  - ERYTHEMA [None]
  - PRURITUS [None]
  - URTICARIA [None]
